FAERS Safety Report 14482989 (Version 3)
Quarter: 2020Q3

REPORT INFORMATION
  Report Type: Report from Study
  Country: None (occurrence: KR)
  Receive Date: 20180203
  Receipt Date: 20200710
  Transmission Date: 20201102
  Serious: Yes (Death, Hospitalization)
  Sender: FDA-Public Use
  Company Number: KR-ABBVIE-18K-090-2245257-00

PATIENT
  Age: 59 Year
  Sex: Female
  Weight: 54 kg

DRUGS (17)
  1. HUMIRA [Suspect]
     Active Substance: ADALIMUMAB
     Indication: BEHCET^S SYNDROME
     Route: 058
     Dates: start: 20161228, end: 20180117
  2. DEXILANT [Concomitant]
     Active Substance: DEXLANSOPRAZOLE
     Indication: GASTROOESOPHAGEAL REFLUX DISEASE
     Route: 048
     Dates: start: 20161226, end: 20161226
  3. SUDAFED [Concomitant]
     Active Substance: PSEUDOEPHEDRINE HYDROCHLORIDE
     Indication: COUGH
     Route: 048
     Dates: start: 20170327, end: 20170405
  4. CORTISOLU [Concomitant]
     Active Substance: HYDROCORTISONE SODIUM SUCCINATE
     Indication: BEHCET^S SYNDROME
     Route: 042
     Dates: start: 20161226
  5. ASACOL [Concomitant]
     Active Substance: MESALAMINE
     Indication: BEHCET^S SYNDROME
     Route: 048
     Dates: start: 201701
  6. LAMINA?G [Concomitant]
     Indication: GASTROOESOPHAGEAL REFLUX DISEASE
     Route: 048
     Dates: start: 20170302, end: 20170308
  7. RAMNOS [Concomitant]
     Indication: BEHCET^S SYNDROME
     Route: 048
  8. MEIACT [Concomitant]
     Active Substance: CEFDITOREN PIVOXIL
     Indication: COUGH
     Route: 048
     Dates: start: 20170327, end: 20170405
  9. KEPPRA [Concomitant]
     Active Substance: LEVETIRACETAM
     Indication: BEHCET^S SYNDROME
     Route: 048
     Dates: start: 20170121
  10. K?CONTIN [Concomitant]
     Indication: PRODUCT USED FOR UNKNOWN INDICATION
     Dates: start: 20170123
  11. BEECOM [Concomitant]
     Indication: BEHCET^S SYNDROME
     Route: 048
  12. POLYBUTINE [Concomitant]
     Indication: BEHCET^S SYNDROME
  13. STILNOX [Concomitant]
     Active Substance: ZOLPIDEM TARTRATE
     Indication: SLEEP DISORDER
     Route: 048
     Dates: start: 20161228, end: 20161229
  14. COFREL [Concomitant]
     Indication: COUGH
     Route: 048
     Dates: start: 20170327, end: 20170405
  15. ACETAMINOPHEN. [Concomitant]
     Active Substance: ACETAMINOPHEN
     Indication: BEHCET^S SYNDROME
     Route: 048
     Dates: start: 20170121
  16. LANSTON [Concomitant]
     Active Substance: LANSOPRAZOLE
     Indication: GASTROOESOPHAGEAL REFLUX DISEASE
     Route: 048
     Dates: start: 20170112, end: 20170112
  17. SOLONDO [Concomitant]
     Active Substance: PREDNISOLONE
     Indication: BEHCET^S SYNDROME
     Route: 048
     Dates: start: 20170105

REACTIONS (1)
  - Subarachnoid haemorrhage [Fatal]

NARRATIVE: CASE EVENT DATE: 20180121
